FAERS Safety Report 23861315 (Version 3)
Quarter: 2024Q4

REPORT INFORMATION
  Report Type: Report from Study
  Country: BR (occurrence: BR)
  Receive Date: 20240516
  Receipt Date: 20241119
  Transmission Date: 20250115
  Serious: Yes (Hospitalization, Other)
  Sender: NOVARTIS
  Company Number: BR-002147023-NVSC2024BR101163

PATIENT
  Sex: Female

DRUGS (2)
  1. KISQALI [Suspect]
     Active Substance: RIBOCICLIB
     Indication: Product used for unknown indication
     Dosage: UNK
     Route: 065
  2. LETROZOLE [Suspect]
     Active Substance: LETROZOLE
     Indication: Product used for unknown indication
     Dosage: UNK
     Route: 065

REACTIONS (27)
  - Pneumonia [Recovered/Resolved]
  - Pleural effusion [Recovered/Resolved]
  - Metastases to liver [Recovering/Resolving]
  - Metastasis [Unknown]
  - Seizure [Recovered/Resolved]
  - Weight decreased [Unknown]
  - Malaise [Recovered/Resolved with Sequelae]
  - Hepatomegaly [Unknown]
  - Hepatic mass [Unknown]
  - Drug ineffective [Unknown]
  - Speech disorder [Unknown]
  - Dyspnoea [Unknown]
  - Ill-defined disorder [Unknown]
  - Anaemia [Recovered/Resolved]
  - Fatigue [Recovered/Resolved]
  - Asthenia [Recovered/Resolved]
  - Eating disorder [Recovered/Resolved]
  - Decreased appetite [Recovered/Resolved]
  - Vomiting [Recovered/Resolved]
  - Fall [Recovered/Resolved]
  - Blood sodium decreased [Recovered/Resolved]
  - Breast swelling [Recovered/Resolved]
  - Erythema [Recovered/Resolved]
  - Breast pain [Recovered/Resolved]
  - Influenza like illness [Recovered/Resolved]
  - Visual impairment [Unknown]
  - Balance disorder [Not Recovered/Not Resolved]

NARRATIVE: CASE EVENT DATE: 20240201
